FAERS Safety Report 15058701 (Version 1)
Quarter: 2018Q2

REPORT INFORMATION
  Report Type: Spontaneous
  Country: US (occurrence: US)
  Receive Date: 20180625
  Receipt Date: 20180625
  Transmission Date: 20180711
  Serious: No
  Sender: FDA-Public Use
  Company Number: US-BAYER-2018-119019

PATIENT
  Age: 84 Year
  Sex: Female
  Weight: 64 kg

DRUGS (1)
  1. MIRALAX [Suspect]
     Active Substance: POLYETHYLENE GLYCOL 3350
     Dosage: UNK (1/2 OF WHITE PORTION OF CAP DOSE)
     Route: 048
     Dates: start: 1996

REACTIONS (1)
  - Underdose [Unknown]

NARRATIVE: CASE EVENT DATE: 1996
